FAERS Safety Report 10361351 (Version 3)
Quarter: 2016Q1

REPORT INFORMATION
  Report Type: Spontaneous
  Country: US (occurrence: US)
  Receive Date: 20140804
  Receipt Date: 20160214
  Transmission Date: 20160525
  Serious: Yes (Hospitalization, Other)
  Sender: FDA-Public Use
  Company Number: US-ROCHE-1442702

PATIENT
  Age: 28 Year
  Sex: Female

DRUGS (20)
  1. BACTRIM [Suspect]
     Active Substance: SULFAMETHOXAZOLE\TRIMETHOPRIM
     Indication: PRODUCT USED FOR UNKNOWN INDICATION
     Route: 065
  2. PHENOBARBITAL. [Concomitant]
     Active Substance: PHENOBARBITAL
     Indication: SEIZURE
     Dosage: NOON
     Route: 065
  3. LASIX [Concomitant]
     Active Substance: FUROSEMIDE
     Route: 065
  4. TYLENOL [Concomitant]
     Active Substance: ACETAMINOPHEN
  5. BACLOFEN. [Concomitant]
     Active Substance: BACLOFEN
     Route: 065
  6. KLONOPIN [Suspect]
     Active Substance: CLONAZEPAM
     Route: 048
     Dates: start: 2011
  7. PHENOBARBITAL. [Concomitant]
     Active Substance: PHENOBARBITAL
     Dosage: AT MIDNIGHT
     Route: 065
  8. METOPROLOL TARTRATE. [Concomitant]
     Active Substance: METOPROLOL TARTRATE
     Indication: PULMONARY HYPERTENSION
     Dosage: EVERY 12 HOURS
     Route: 065
  9. LASIX [Concomitant]
     Active Substance: FUROSEMIDE
     Dosage: EVERY OTHER DAY
     Route: 065
  10. LASIX [Concomitant]
     Active Substance: FUROSEMIDE
     Dosage: EVERY OTHER DAY
     Route: 065
  11. KLONOPIN [Suspect]
     Active Substance: CLONAZEPAM
     Indication: MYOCLONIC EPILEPSY
     Route: 065
     Dates: start: 201003
  12. ATIVAN [Concomitant]
     Active Substance: LORAZEPAM
     Indication: AGITATION
     Dosage: DO NOT EXCEED 2 MG A DAY
     Route: 065
  13. KLONOPIN [Suspect]
     Active Substance: CLONAZEPAM
     Route: 048
  14. KEPPRA [Concomitant]
     Active Substance: LEVETIRACETAM
     Route: 065
  15. ASPIRIN. [Concomitant]
     Active Substance: ASPIRIN
  16. TAMIFLU [Suspect]
     Active Substance: OSELTAMIVIR PHOSPHATE
     Indication: PRODUCT USED FOR UNKNOWN INDICATION
     Route: 065
  17. RISPERDAL [Concomitant]
     Active Substance: RISPERIDONE
     Route: 065
  18. LACOSAMIDE [Concomitant]
     Active Substance: LACOSAMIDE
     Route: 065
  19. KLONOPIN [Suspect]
     Active Substance: CLONAZEPAM
     Route: 048
     Dates: start: 201003
  20. FLECAINIDE [Concomitant]
     Active Substance: FLECAINIDE
     Route: 065

REACTIONS (12)
  - Sinus node dysfunction [Recovered/Resolved with Sequelae]
  - Endotracheal intubation [Recovered/Resolved with Sequelae]
  - Left ventricular hypertrophy [Not Recovered/Not Resolved]
  - Staphylococcal infection [Unknown]
  - Hepatic enzyme increased [Not Recovered/Not Resolved]
  - Cardiac failure congestive [Not Recovered/Not Resolved]
  - Enterococcal infection [Recovered/Resolved]
  - Pulmonary oedema [Not Recovered/Not Resolved]
  - Cardiomyopathy [Not Recovered/Not Resolved]
  - Pneumonia aspiration [Recovered/Resolved with Sequelae]
  - Rash [Unknown]
  - Blood alkaline phosphatase increased [Unknown]

NARRATIVE: CASE EVENT DATE: 20140317
